FAERS Safety Report 4648150-9 (Version None)
Quarter: 2005Q2

REPORT INFORMATION
  Report Type: 
  Country: None (occurrence: None)
  Receive Date: 20050331
  Receipt Date: 20041210
  Transmission Date: 20051028
  Serious: No
  Sender: FDA-Public Use
  Company Number: 04P-163-0283093

PATIENT
  Age: 75 Year
  Sex: Female

DRUGS (9)
  1. HUMIRA [Suspect]
     Indication: RHEUMATOID ARTHRITIS
     Dosage: SUBCUTANEOUS
     Route: 058
     Dates: start: 20040316, end: 20041122
  2. METHOTREXATE [Concomitant]
  3. FOLIC ACID [Concomitant]
  4. LEVOTHYROXINE SODIUM [Concomitant]
  5. TRAMADOL HCL [Concomitant]
  6. PREDNISONE [Concomitant]
  7. CYCLOBENZAPRINE HYDROCHLORIDE [Concomitant]
  8. BUCINDOLOL HYDROCHLORIDE [Concomitant]
  9. MULTI-VITAMINS [Concomitant]

REACTIONS (2)
  - BREAST CANCER [None]
  - LUNG CANCER METASTATIC [None]
